FAERS Safety Report 8725769 (Version 5)
Quarter: 2014Q2

REPORT INFORMATION
  Report Type: Report from Study
  Country: FR (occurrence: FR)
  Receive Date: 20120816
  Receipt Date: 20140401
  Transmission Date: 20141212
  Serious: Yes (Hospitalization, Other)
  Sender: FDA-Public Use
  Company Number: FR-BIOGENIDEC-2012BI029920

PATIENT
  Age: 26 Year
  Sex: Female

DRUGS (3)
  1. TYSABRI [Suspect]
     Indication: MULTIPLE SCLEROSIS
     Route: 042
     Dates: start: 20071110, end: 20120620
  2. LAMICTAL [Concomitant]
     Indication: EPILEPSY
  3. COUMADINE [Concomitant]

REACTIONS (1)
  - Invasive ductal breast carcinoma [Recovered/Resolved]
